FAERS Safety Report 9364062 (Version 2)
Quarter: 2013Q2

REPORT INFORMATION
  Report Type: Spontaneous
  Country: US (occurrence: US)
  Receive Date: 20130624
  Receipt Date: 20130628
  Transmission Date: 20140414
  Serious: No
  Sender: FDA-Public Use
  Company Number: US-TEVA-414762USA

PATIENT
  Age: 38 Year
  Sex: Female
  Weight: 81.72 kg

DRUGS (3)
  1. PLAN B ONE-STEP [Suspect]
     Indication: POST COITAL CONTRACEPTION
     Dosage: 1.5 MILLIGRAM DAILY;
     Route: 048
     Dates: start: 20130520, end: 20130520
  2. PLAN B ONE-STEP [Suspect]
     Dosage: 1.5 MILLIGRAM DAILY;
     Route: 048
     Dates: start: 20130616, end: 20130616
  3. TYLENOL [Concomitant]
     Indication: BACK PAIN

REACTIONS (5)
  - Hair growth abnormal [Recovered/Resolved]
  - Abdominal distension [Recovered/Resolved]
  - Breast tenderness [Recovered/Resolved]
  - Menstruation irregular [Recovered/Resolved]
  - Menstruation delayed [Recovered/Resolved]
